FAERS Safety Report 8000753 (Version 2)
Quarter: 2014Q2

REPORT INFORMATION
  Report Type: Spontaneous
  Country: US (occurrence: US)
  Receive Date: 20110621
  Receipt Date: 20140404
  Transmission Date: 20141212
  Serious: No
  Sender: FDA-Public Use
  Company Number: US-ASTRAZENECA-2010SE58371

PATIENT
  Age: 50 Year
  Sex: Male
  Weight: 30.8 kg

DRUGS (14)
  1. PULMICORT FLEXHALER [Suspect]
     Indication: ASTHMA
     Dosage: 180 MCG, TWO TIMES A DAY
     Route: 055
     Dates: start: 1999, end: 2009
  2. PULMICORT FLEXHALER [Suspect]
     Indication: ASTHMA
     Dosage: 180 MCG , TWO TIMES A DAY
     Route: 055
     Dates: start: 2009, end: 20140215
  3. OMEPRAZOLE [Suspect]
     Indication: DYSPEPSIA
     Route: 048
     Dates: start: 201402
  4. MORPHINE [Suspect]
     Route: 065
  5. LEVOTHRYOXINE [Suspect]
     Route: 065
  6. VITAMIN D [Suspect]
     Route: 065
  7. SINGULAIR [Concomitant]
  8. PAXIL [Concomitant]
  9. PROZAC [Concomitant]
  10. SEREVENT INHALER [Concomitant]
     Indication: ASTHMA
  11. VENTOLIN [Concomitant]
     Indication: PROPHYLAXIS AGAINST BRONCHOSPASM
  12. GAS X [Concomitant]
     Indication: FLATULENCE
  13. BENEDRYL [Concomitant]
     Indication: HYPERSENSITIVITY
  14. BENEDRYL [Concomitant]
     Indication: EYE SWELLING

REACTIONS (22)
  - Dizziness [Unknown]
  - Heart rate increased [Unknown]
  - Dysphonia [Unknown]
  - Lethargy [Unknown]
  - Blister [Unknown]
  - Rash [Unknown]
  - Pruritus [Unknown]
  - Multiple allergies [Unknown]
  - Asthma [Unknown]
  - Liver disorder [Unknown]
  - Inadequate diet [Unknown]
  - Gastrointestinal disorder [Not Recovered/Not Resolved]
  - Abdominal distension [Not Recovered/Not Resolved]
  - Flatulence [Not Recovered/Not Resolved]
  - Intentional product misuse [Unknown]
  - Eye swelling [Unknown]
  - Off label use [Unknown]
  - Asthma [Unknown]
  - Drug dose omission [Not Recovered/Not Resolved]
  - Cough [Unknown]
  - Drug ineffective [Unknown]
  - Hypersensitivity [Unknown]
